FAERS Safety Report 20636579 (Version 1)
Quarter: 2022Q1

REPORT INFORMATION
  Report Type: Spontaneous
  Country: NL (occurrence: NL)
  Receive Date: 20220325
  Receipt Date: 20220325
  Transmission Date: 20220423
  Serious: Yes (Other)
  Sender: FDA-Public Use
  Company Number: NL-PHARMAAND-2022-Mesalazine-318

PATIENT
  Age: 56 Year
  Sex: Male

DRUGS (1)
  1. MESALAMINE [Suspect]
     Active Substance: MESALAMINE
     Indication: Crohn^s disease
     Dosage: 4 GRAM, QD
     Route: 065

REACTIONS (4)
  - Nausea [Recovering/Resolving]
  - Autoimmune hepatitis [Recovering/Resolving]
  - Jaundice [Recovering/Resolving]
  - Hepatic enzyme increased [Recovered/Resolved]
